FAERS Safety Report 9284242 (Version 2)
Quarter: 2013Q3

REPORT INFORMATION
  Report Type: Spontaneous
  Country: JP (occurrence: JP)
  Receive Date: 20130510
  Receipt Date: 20130702
  Transmission Date: 20140515
  Serious: Yes (Other)
  Sender: FDA-Public Use
  Company Number: PHHY2013JP046493

PATIENT
  Age: 73 Year
  Sex: Male
  Weight: 71 kg

DRUGS (5)
  1. CO-DIOVAN [Suspect]
     Indication: HYPERTENSION
     Dosage: 1 DF, DAILY
     Route: 048
     Dates: start: 20120221, end: 20130507
  2. CO-DIOVAN [Suspect]
     Dosage: 1 DF, DAILY
     Route: 048
     Dates: start: 20130603
  3. DIOVAN [Concomitant]
     Indication: HYPERTENSION
     Dosage: 80 MG
     Route: 048
     Dates: start: 20130507, end: 20130602
  4. PLETAAL [Concomitant]
     Indication: ARTERIAL OCCLUSIVE DISEASE
     Dosage: 100 MG, UNK
     Route: 048
     Dates: start: 20120731
  5. EPADEL-S [Concomitant]
     Indication: HYPERLIPIDAEMIA
     Dosage: 1800 MG
     Dates: start: 20120820

REACTIONS (2)
  - Road traffic accident [Unknown]
  - Memory impairment [Recovered/Resolved]
